FAERS Safety Report 7632469-3 (Version None)
Quarter: 2011Q3

REPORT INFORMATION
  Report Type: 
  Country: None (occurrence: None)
  Receive Date: 20110725
  Receipt Date: 20100916
  Transmission Date: 20111222
  Serious: No
  Sender: FDA-Public Use
  Company Number: US-BRISTOL-MYERS SQUIBB COMPANY-15289002

PATIENT
  Age: 40 Year
  Sex: Female

DRUGS (2)
  1. PULMICORT [Concomitant]
  2. COUMADIN [Suspect]
     Indication: DEEP VEIN THROMBOSIS
     Dosage: THERAPY STARTED:2 WEEKS AGO
     Dates: start: 20100101

REACTIONS (3)
  - MYALGIA [None]
  - ARTHRALGIA [None]
  - DIZZINESS [None]
